FAERS Safety Report 8024983-6 (Version None)
Quarter: 2012Q1

REPORT INFORMATION
  Report Type: 
  Country: None (occurrence: None)
  Receive Date: 20120105
  Receipt Date: 20110719
  Transmission Date: 20120608
  Serious: Yes (Life-Threatening, Hospitalization)
  Sender: FDA-Public Use
  Company Number: US-BAYER-201029997NA

PATIENT
  Age: 35 Year
  Sex: Female
  Weight: 57.596 kg

DRUGS (17)
  1. ROBINUL [Concomitant]
  2. ATROPINE [Concomitant]
     Indication: BRADYCARDIA
  3. YAZ [Suspect]
     Indication: PREMENSTRUAL SYNDROME
  4. GLYCOPYRROLATE [Concomitant]
  5. YAZ [Suspect]
     Indication: MUSCLE SPASMS
     Dosage: UNK
     Route: 048
     Dates: start: 20080713, end: 20080815
  6. ATROPINE [Concomitant]
     Indication: HYPOTENSION
  7. POTASSIUM CHLORIDE [Concomitant]
  8. PONSTEL [Concomitant]
     Indication: MUSCLE SPASMS
     Dosage: UNK UNK, PRN
     Dates: start: 20080603
  9. KLONOPIN [Concomitant]
     Indication: ANXIETY
     Dosage: UNK UNK, PRN
  10. WARFARIN SODIUM [Concomitant]
  11. CALCIUM CARBONATE [Concomitant]
  12. ZINC [ZINC] [Concomitant]
  13. ASCORBIC ACID [Concomitant]
  14. SODIUM BICARBONATE [Concomitant]
     Dosage: UNK
  15. NSAID'S [Concomitant]
  16. NEXIUM [Concomitant]
     Dosage: 40 MG, BID
     Dates: start: 20080611
  17. PROTONIX [Concomitant]
     Dosage: 40 MG, QD
     Route: 048
     Dates: start: 20080801

REACTIONS (7)
  - PULMONARY EMBOLISM [None]
  - ENDOTRACHEAL INTUBATION [None]
  - CARDIAC ARREST [None]
  - CONVULSION [None]
  - DEEP VEIN THROMBOSIS [None]
  - CARDIO-RESPIRATORY ARREST [None]
  - MECHANICAL VENTILATION [None]
